FAERS Safety Report 6853195-4 (Version None)
Quarter: 2010Q3

REPORT INFORMATION
  Report Type: 
  Country: None (occurrence: None)
  Receive Date: 20100717
  Receipt Date: 20080111
  Transmission Date: 20110219
  Serious: No
  Sender: FDA-Public Use
  Company Number: US-PFIZER INC-2007100725

PATIENT
  Sex: Female
  Weight: 68.2 kg

DRUGS (4)
  1. CHANTIX [Suspect]
     Indication: SMOKING CESSATION THERAPY
     Dosage: DAILY: EVERY DAY
     Dates: start: 20071101
  2. PAXIL [Interacting]
  3. RANITIDINE [Concomitant]
     Indication: GASTRIC DISORDER
  4. LORAZEPAM [Concomitant]

REACTIONS (13)
  - ABDOMINAL DISTENSION [None]
  - ANORGASMIA [None]
  - BACK PAIN [None]
  - BREAST PAIN [None]
  - DRUG INTERACTION [None]
  - FEELING ABNORMAL [None]
  - FLATULENCE [None]
  - HEADACHE [None]
  - INSOMNIA [None]
  - MENSTRUATION IRREGULAR [None]
  - MUSCLE SPASMS [None]
  - NAUSEA [None]
  - VOMITING [None]
